FAERS Safety Report 19857262 (Version 2)
Quarter: 2021Q4

REPORT INFORMATION
  Report Type: Spontaneous
  Country: CA (occurrence: CA)
  Receive Date: 20210920
  Receipt Date: 20211221
  Transmission Date: 20220304
  Serious: Yes (Other)
  Sender: FDA-Public Use
  Company Number: CA-ALLERGAN-2132448US

PATIENT
  Sex: Male

DRUGS (6)
  1. MESALAMINE [Suspect]
     Active Substance: MESALAMINE
     Indication: Prophylaxis against transplant rejection
     Dosage: UNK
  2. URSODIOL [Suspect]
     Active Substance: URSODIOL
     Indication: Prophylaxis against transplant rejection
     Dosage: UNK
  3. URSODIOL [Suspect]
     Active Substance: URSODIOL
     Indication: Immunosuppressant drug therapy
  4. DASATINIB [Suspect]
     Active Substance: DASATINIB
     Indication: Chronic myeloid leukaemia
     Dosage: 50 MG, QD
  5. PREDNISONE [Suspect]
     Active Substance: PREDNISONE
     Indication: Immunosuppression
     Dosage: UNK
  6. TACROLIMUS [Suspect]
     Active Substance: TACROLIMUS
     Indication: Immunosuppression
     Dosage: UNK

REACTIONS (2)
  - General physical health deterioration [Recovered/Resolved]
  - Off label use [Unknown]
